FAERS Safety Report 7565678-2 (Version None)
Quarter: 2011Q2

REPORT INFORMATION
  Report Type: 
  Country: None (occurrence: None)
  Receive Date: 20110623
  Receipt Date: 20100601
  Transmission Date: 20111010
  Serious: No
  Sender: FDA-Public Use
  Company Number: US-MUTUAL PHARMACEUTICAL COMPANY, INC.-1-22842407

PATIENT
  Sex: Female
  Weight: 90.8 kg

DRUGS (5)
  1. METOCLOPRAMIDE [Suspect]
     Route: 048
     Dates: start: 20021204
  2. METOCLOPRAMIDE [Suspect]
     Route: 048
     Dates: start: 20060502
  3. METOCLOPRAMIDE [Suspect]
     Route: 048
     Dates: start: 20060711
  4. SEE MEDWATCH PAGE 2 [Concomitant]
  5. METOCLOPRAMIDE [Suspect]
     Route: 048
     Dates: start: 20070319, end: 20071101

REACTIONS (10)
  - DYSKINESIA [None]
  - PAIN IN JAW [None]
  - INCORRECT DRUG ADMINISTRATION DURATION [None]
  - HEADACHE [None]
  - EMOTIONAL DISORDER [None]
  - EXTRAPYRAMIDAL DISORDER [None]
  - VERTIGO [None]
  - PARKINSONISM [None]
  - EAR PAIN [None]
  - PAIN IN EXTREMITY [None]
